FAERS Safety Report 19059357 (Version 1)
Quarter: 2021Q1

REPORT INFORMATION
  Report Type: Report from Study
  Country: US (occurrence: US)
  Receive Date: 20210325
  Receipt Date: 20210325
  Transmission Date: 20210420
  Serious: Yes (Other)
  Sender: FDA-Public Use
  Company Number: US-INCYTE CORPORATION-2018IN007691

PATIENT

DRUGS (2)
  1. JAKAFI [Suspect]
     Active Substance: RUXOLITINIB
     Indication: MYELOFIBROSIS
     Dosage: 20 MG, BID
     Route: 048
     Dates: start: 20170728
  2. TYLENOL PM [Suspect]
     Active Substance: ACETAMINOPHEN\DIPHENHYDRAMINE
     Indication: PRODUCT USED FOR UNKNOWN INDICATION
     Dosage: UNK
     Route: 065
     Dates: start: 202012

REACTIONS (15)
  - Atrial fibrillation [Unknown]
  - Therapeutic response unexpected [Unknown]
  - Migraine with aura [Unknown]
  - Splenomegaly [Unknown]
  - Abnormal dreams [Unknown]
  - Visual impairment [Unknown]
  - Tinnitus [Unknown]
  - Erythema [Unknown]
  - Bone pain [Unknown]
  - Cardiac failure [Unknown]
  - Early satiety [Unknown]
  - Vision blurred [Unknown]
  - Haemoglobin decreased [Unknown]
  - Insomnia [Unknown]
  - Abdominal pain [Recovered/Resolved]

NARRATIVE: CASE EVENT DATE: 202012
